FAERS Safety Report 20499351 (Version 1)
Quarter: 2022Q1

REPORT INFORMATION
  Report Type: Spontaneous
  Country: US (occurrence: US)
  Receive Date: 20220222
  Receipt Date: 20220222
  Transmission Date: 20220423
  Serious: No
  Sender: FDA-Public Use
  Company Number: US-HETERO-HET2022US00443

PATIENT

DRUGS (1)
  1. RITONAVIR [Suspect]
     Active Substance: RITONAVIR
     Indication: COVID-19
     Dosage: TWICE PER DAY(9 AM AND 9 PM)
     Route: 065
     Dates: start: 20220210

REACTIONS (2)
  - Hiccups [Unknown]
  - Nervousness [Unknown]

NARRATIVE: CASE EVENT DATE: 20220201
